FAERS Safety Report 21358492 (Version 1)
Quarter: 2022Q3

REPORT INFORMATION
  Report Type: Spontaneous
  Country: US (occurrence: None)
  Receive Date: 20220920
  Receipt Date: 20220920
  Transmission Date: 20221027
  Serious: No
  Sender: FDA-Public Use
  Company Number: None

PATIENT
  Age: 79 Year
  Sex: Male

DRUGS (1)
  1. COSENTYX [Suspect]
     Active Substance: SECUKINUMAB
     Dosage: OTHER FREQUENCY : OTHER;?
     Route: 058

REACTIONS (4)
  - Hypersensitivity [None]
  - Swelling face [None]
  - Swelling [None]
  - Pharyngeal swelling [None]

NARRATIVE: CASE EVENT DATE: 20220803
